FAERS Safety Report 16589558 (Version 1)
Quarter: 2019Q3

REPORT INFORMATION
  Report Type: Spontaneous
  Country: CN (occurrence: CN)
  Receive Date: 20190718
  Receipt Date: 20190718
  Transmission Date: 20191004
  Serious: Yes (Other)
  Sender: FDA-Public Use
  Company Number: CN-ROCHE-2351455

PATIENT
  Age: 56 Year
  Sex: Male

DRUGS (8)
  1. CAPECITABINE. [Suspect]
     Active Substance: CAPECITABINE
     Route: 048
     Dates: start: 20180603, end: 20181010
  2. OXALIPLATIN. [Suspect]
     Active Substance: OXALIPLATIN
     Indication: CANCER SURGERY
     Route: 041
     Dates: start: 20180221, end: 201810
  3. OXALIPLATIN. [Suspect]
     Active Substance: OXALIPLATIN
     Route: 041
     Dates: start: 20180603, end: 20181010
  4. CAPECITABINE. [Suspect]
     Active Substance: CAPECITABINE
     Indication: CANCER SURGERY
     Route: 048
     Dates: start: 20180221, end: 20181025
  5. CETUXIMAB. [Concomitant]
     Active Substance: CETUXIMAB
     Indication: CANCER SURGERY
     Route: 041
     Dates: start: 20190227, end: 20190626
  6. CALCIUM FOLINATE [Concomitant]
     Active Substance: LEUCOVORIN CALCIUM
     Indication: CANCER SURGERY
     Route: 041
     Dates: start: 20190227, end: 20190626
  7. IRINOTECAN [Concomitant]
     Active Substance: IRINOTECAN
     Indication: CANCER SURGERY
     Route: 041
     Dates: start: 20190227, end: 20190626
  8. 5-FLUOROURACIL [FLUOROURACIL] [Concomitant]
     Active Substance: FLUOROURACIL
     Indication: CANCER SURGERY
     Route: 041
     Dates: start: 20190227, end: 20190626

REACTIONS (10)
  - Lymphadenopathy [Unknown]
  - Haematotoxicity [Recovering/Resolving]
  - Ill-defined disorder [Unknown]
  - Neurotoxicity [Recovering/Resolving]
  - Paronychia [Unknown]
  - Gastrointestinal disorder [Unknown]
  - Gastroenteritis radiation [Recovering/Resolving]
  - Pulmonary cavitation [Unknown]
  - Bone marrow failure [Unknown]
  - Rash [Unknown]

NARRATIVE: CASE EVENT DATE: 201807
